FAERS Safety Report 10200718 (Version 1)
Quarter: 2014Q2

REPORT INFORMATION
  Report Type: Other
  Country: CH (occurrence: CH)
  Receive Date: 20140528
  Receipt Date: 20140528
  Transmission Date: 20141212
  Serious: Yes (Death)
  Sender: FDA-Public Use
  Company Number: CH-LUPIN PHARMACEUTICALS INC.-2014-01015

PATIENT
  Age: 70 Year
  Sex: Female
  Weight: 117 kg

DRUGS (6)
  1. METFORMIN [Suspect]
     Indication: PRODUCT USED FOR UNKNOWN INDICATION
     Dosage: AT A DOSE OF 500MG AT 8AM, 1000MG AT 1PM AND 1000MG AT 7PM THRICE A DAY
     Route: 065
  2. METFORMIN [Suspect]
     Dosage: AT A DOSE OF 500MG AT 8AM, 1000MG AT 1PM AND 1000MG AT 7PM THRICE A DAY
     Route: 065
  3. IRBESARTAN [Concomitant]
     Indication: PRODUCT USED FOR UNKNOWN INDICATION
     Route: 065
  4. FUROSEMIDE [Concomitant]
     Indication: PRODUCT USED FOR UNKNOWN INDICATION
     Route: 065
  5. INSULIN [Concomitant]
     Indication: PRODUCT USED FOR UNKNOWN INDICATION
  6. HEPARIN [Concomitant]
     Indication: COAGULOPATHY
     Route: 065

REACTIONS (3)
  - Lactic acidosis [Fatal]
  - Toxicity to various agents [Fatal]
  - Cardio-respiratory arrest [Fatal]
